FAERS Safety Report 12390591 (Version 2)
Quarter: 2016Q2

REPORT INFORMATION
  Report Type: Report from Study
  Country: DE (occurrence: DE)
  Receive Date: 20160520
  Receipt Date: 20160621
  Transmission Date: 20160815
  Serious: Yes (Hospitalization, Other)
  Sender: FDA-Public Use
  Company Number: DE-ABBVIE-16K-062-1628503-00

PATIENT
  Age: 37 Year
  Sex: Female
  Weight: 137 kg

DRUGS (1)
  1. HUMIRA [Suspect]
     Active Substance: ADALIMUMAB
     Indication: RHEUMATOID ARTHRITIS
     Route: 058
     Dates: start: 20110517

REACTIONS (5)
  - Purpura [Not Recovered/Not Resolved]
  - Hypersensitivity vasculitis [Unknown]
  - Infection [Unknown]
  - Skin ulcer [Not Recovered/Not Resolved]
  - Haematuria [Unknown]

NARRATIVE: CASE EVENT DATE: 201406
